FAERS Safety Report 13129835 (Version 1)
Quarter: 2017Q1

REPORT INFORMATION
  Report Type: Spontaneous
  Country: US (occurrence: US)
  Receive Date: 20170118
  Receipt Date: 20170118
  Transmission Date: 20170428
  Serious: Yes (Other)
  Sender: FDA-Public Use
  Company Number: None

PATIENT
  Age: 74 Year
  Sex: Male
  Weight: 69 kg

DRUGS (1)
  1. PIRFENIDONE [Suspect]
     Active Substance: PIRFENIDONE
     Indication: COMBINED PULMONARY FIBROSIS AND EMPHYSEMA
     Route: 048
     Dates: start: 20160923, end: 20161107

REACTIONS (2)
  - Lethargy [None]
  - Abdominal pain [None]

NARRATIVE: CASE EVENT DATE: 20161101
